FAERS Safety Report 20107643 (Version 1)
Quarter: 2021Q4

REPORT INFORMATION
  Report Type: Spontaneous
  Country: US (occurrence: None)
  Receive Date: 20211123
  Receipt Date: 20211123
  Transmission Date: 20220303
  Serious: No
  Sender: FDA-Public Use
  Company Number: None

PATIENT
  Age: 55 Year
  Sex: Male
  Weight: 134.55 kg

DRUGS (4)
  1. BAMLANIVIMAB [Suspect]
     Active Substance: BAMLANIVIMAB
     Indication: COVID-19
     Dosage: OTHER FREQUENCY : ONCE;?
     Route: 042
     Dates: start: 20211123, end: 20211123
  2. ETESEVIMAB [Suspect]
     Active Substance: ETESEVIMAB
     Indication: COVID-19
     Dosage: OTHER FREQUENCY : ONCE;?
     Route: 042
     Dates: start: 20211123, end: 20211123
  3. BAMLANIVIMAB [Concomitant]
     Active Substance: BAMLANIVIMAB
     Dates: start: 20211123, end: 20211123
  4. ETESEVIMAB [Concomitant]
     Active Substance: ETESEVIMAB
     Dates: start: 20211123, end: 20211123

REACTIONS (5)
  - Muscle spasms [None]
  - Muscle spasms [None]
  - Back pain [None]
  - Pain [None]
  - Infusion related reaction [None]

NARRATIVE: CASE EVENT DATE: 20211123
